FAERS Safety Report 5418029-3 (Version None)
Quarter: 2007Q3

REPORT INFORMATION
  Report Type: 
  Country: None (occurrence: None)
  Receive Date: 20070817
  Receipt Date: 20070214
  Transmission Date: 20080115
  Serious: No
  Sender: FDA-Public Use
  Company Number: A0639570A

PATIENT
  Age: 67 Year
  Sex: Male

DRUGS (2)
  1. BEXXAR [Suspect]
     Indication: NON-HODGKIN'S LYMPHOMA
     Route: 042
     Dates: start: 20070208, end: 20070208
  2. ANTIBIOTIC (UNSPECIFIED) [Concomitant]

REACTIONS (3)
  - BLISTER [None]
  - INFECTION [None]
  - PYREXIA [None]
